FAERS Safety Report 17040732 (Version 2)
Quarter: 2019Q4

REPORT INFORMATION
  Report Type: Spontaneous
  Country: US (occurrence: US)
  Receive Date: 20191117
  Receipt Date: 20191203
  Transmission Date: 20200122
  Serious: No
  Sender: FDA-Public Use
  Company Number: US-JNJFOC-20191112958

PATIENT
  Age: 56 Year
  Sex: Female
  Weight: 47.67 kg

DRUGS (1)
  1. WOMENS ROGAINE UNSCENTED [Suspect]
     Active Substance: MINOXIDIL
     Indication: ALOPECIA
     Dosage: NOT SURE MAYBE PATIENT USED A WRONG DENSITY?(SPRAY)
     Route: 061
     Dates: start: 20191010

REACTIONS (8)
  - Alopecia [Not Recovered/Not Resolved]
  - Product container issue [Unknown]
  - Product formulation issue [Unknown]
  - Seborrhoea [Not Recovered/Not Resolved]
  - Incorrect dose administered [Unknown]
  - Hair texture abnormal [Not Recovered/Not Resolved]
  - Poor quality product administered [Unknown]
  - Inappropriate schedule of product administration [Unknown]

NARRATIVE: CASE EVENT DATE: 20191010
